FAERS Safety Report 25576340 (Version 1)
Quarter: 2025Q3

REPORT INFORMATION
  Report Type: Spontaneous
  Country: TW (occurrence: TW)
  Receive Date: 20250718
  Receipt Date: 20250718
  Transmission Date: 20251021
  Serious: Yes (Death)
  Sender: ASTELLAS
  Company Number: TW-ASTELLAS-2025-AER-039337

PATIENT
  Age: 81 Year
  Sex: Female
  Weight: 68 kg

DRUGS (4)
  1. PADCEV [Suspect]
     Active Substance: ENFORTUMAB VEDOTIN-EJFV
     Indication: Bladder transitional cell carcinoma metastatic
     Route: 042
     Dates: start: 20240219
  2. PADCEV [Suspect]
     Active Substance: ENFORTUMAB VEDOTIN-EJFV
     Route: 042
     Dates: start: 20240229
  3. PADCEV [Suspect]
     Active Substance: ENFORTUMAB VEDOTIN-EJFV
     Route: 042
     Dates: start: 20240307
  4. PEMBROLIZUMAB [Concomitant]
     Active Substance: PEMBROLIZUMAB
     Indication: Bladder transitional cell carcinoma metastatic
     Route: 065

REACTIONS (3)
  - Haemorrhagic stroke [Fatal]
  - Cerebral haemorrhage [Fatal]
  - Hypertension [Fatal]
